FAERS Safety Report 8522243 (Version 1)
Quarter: 2012Q4

REPORT INFORMATION
  Report Type: 
  Country: US (occurrence: US)
  Receive Date: 20120913
  Receipt Date: 20120913
  Transmission Date: 20130627
  Serious: No
  Sender: FDA-Public Use
  Company Number: US-BAYER-2012-036167

PATIENT

DRUGS (3)
  1. ALEVE CAPLET/TABLET,MIDOL EXTENDED RELIEF CAPLET [Suspect]
     Route: 048
  2. BAYER GENUINE ASPIRIN ORIGINAL STRENGTH [Suspect]
     Route: 048
  3. ADVIL [Concomitant]

REACTIONS (2)
  - Drug ineffective [None]
  - Drug ineffective [Unknown]
